FAERS Safety Report 8550026-1 (Version None)
Quarter: 2012Q3

REPORT INFORMATION
  Report Type: 
  Country: None (occurrence: None)
  Receive Date: 20120718
  Receipt Date: 20120702
  Transmission Date: 20120928
  Serious: Yes (Other)
  Sender: FDA-Public Use
  Company Number: NSR_00582_2012

PATIENT
  Sex: Female

DRUGS (4)
  1. LAMOTRIGINE [Concomitant]
  2. LAMOTRIGINE [Suspect]
     Indication: EPILEPSY
     Dosage: (4 DF QD ORAL)
     Route: 048
     Dates: start: 20120618, end: 20120625
  3. LAMOTRIGINE [Suspect]
     Indication: COMPLEX PARTIAL SEIZURES
     Dosage: (4 DF QD ORAL)
     Route: 048
     Dates: start: 20120618, end: 20120625
  4. CYANOCOBALAMIN [Concomitant]

REACTIONS (9)
  - PRODUCT QUALITY ISSUE [None]
  - LOSS OF CONSCIOUSNESS [None]
  - AMNESIA [None]
  - GRUNTING [None]
  - TONGUE BITING [None]
  - DRUG INEFFECTIVE [None]
  - EPISTAXIS [None]
  - COMPLEX PARTIAL SEIZURES [None]
  - FALL [None]
